FAERS Safety Report 7042945-2 (Version None)
Quarter: 2010Q4

REPORT INFORMATION
  Report Type: 
  Country: None (occurrence: None)
  Receive Date: 20101013
  Receipt Date: 20101007
  Transmission Date: 20110411
  Serious: Yes (Other)
  Sender: FDA-Public Use
  Company Number: US-GENZYME-FABR-1001364

PATIENT

DRUGS (3)
  1. FABRAZYME [Suspect]
     Indication: FABRY'S DISEASE
     Dosage: 55 MG, Q2W
     Route: 042
     Dates: start: 20050101, end: 20100301
  2. FABRAZYME [Suspect]
     Dosage: 25 MG, Q3W
     Route: 042
     Dates: end: 20100401
  3. REPLAGAL [Suspect]
     Indication: PRODUCT USED FOR UNKNOWN INDICATION
     Dosage: UNK
     Dates: start: 20100423

REACTIONS (1)
  - TRANSIENT ISCHAEMIC ATTACK [None]
